FAERS Safety Report 19220284 (Version 1)
Quarter: 2021Q2

REPORT INFORMATION
  Report Type: Report from Study
  Country: None (occurrence: US)
  Receive Date: 20210506
  Receipt Date: 20210506
  Transmission Date: 20210717
  Serious: Yes (Other)
  Sender: FDA-Public Use
  Company Number: US-ABBVIE-21K-163-3886893-00

PATIENT
  Age: 66 Year
  Sex: Female

DRUGS (1)
  1. HUMIRA [Suspect]
     Active Substance: ADALIMUMAB
     Indication: RHEUMATOID ARTHRITIS
     Dosage: CITRATE FREE
     Route: 058
     Dates: start: 202104

REACTIONS (4)
  - Loss of personal independence in daily activities [Unknown]
  - Headache [Unknown]
  - Influenza like illness [Recovered/Resolved]
  - Systemic lupus erythematosus [Unknown]

NARRATIVE: CASE EVENT DATE: 202104
